FAERS Safety Report 7379740-0 (Version None)
Quarter: 2011Q1

REPORT INFORMATION
  Report Type: 
  Country: None (occurrence: None)
  Receive Date: 20110329
  Receipt Date: 20110318
  Transmission Date: 20110831
  Serious: Yes (Other)
  Sender: FDA-Public Use
  Company Number: JP-EISAI INC-E3810-04538-SPO-JP

PATIENT
  Sex: Male

DRUGS (3)
  1. PARIET (RABEPRAZOLE) [Suspect]
     Route: 048
     Dates: start: 20110208, end: 20110208
  2. SAWACILLIN [Suspect]
     Route: 048
     Dates: start: 20110208, end: 20110208
  3. CLARITHROMYCIN [Concomitant]
     Route: 048
     Dates: start: 20110208, end: 20110208

REACTIONS (1)
  - LOSS OF CONSCIOUSNESS [None]
